FAERS Safety Report 18141543 (Version 2)
Quarter: 2020Q3

REPORT INFORMATION
  Report Type: Report from Study
  Country: BR (occurrence: BR)
  Receive Date: 20200812
  Receipt Date: 20200820
  Transmission Date: 20201103
  Serious: Yes (Other)
  Sender: FDA-Public Use
  Company Number: NVSC2020BR220860

PATIENT
  Sex: Female

DRUGS (2)
  1. GARDENAL [Concomitant]
     Active Substance: PHENOBARBITAL
     Indication: PRODUCT USED FOR UNKNOWN INDICATION
     Dosage: UNK
     Route: 065
  2. TEGRETOL XR [Suspect]
     Active Substance: CARBAMAZEPINE
     Indication: PRODUCT USED FOR UNKNOWN INDICATION
     Dosage: 2 DF, BID (1 TABLET IN THE MORNING AND ANOTHER ONE AT NIGHT)
     Route: 065

REACTIONS (15)
  - Epilepsy [Unknown]
  - Varicella [Unknown]
  - Nervousness [Unknown]
  - Dry skin [Unknown]
  - Anaemia [Unknown]
  - Incorrect dose administered [Unknown]
  - Product dose omission issue [Unknown]
  - Skin atrophy [Unknown]
  - Vitamin B12 decreased [Unknown]
  - Hypovitaminosis [Unknown]
  - Vitamin D decreased [Unknown]
  - Weight decreased [Unknown]
  - Confusional state [Unknown]
  - Stress [Unknown]
  - Malaise [Unknown]
